FAERS Safety Report 5757474-3 (Version None)
Quarter: 2008Q2

REPORT INFORMATION
  Report Type: 
  Country: None (occurrence: None)
  Receive Date: 20080603
  Receipt Date: 20080123
  Transmission Date: 20081010
  Serious: No
  Sender: FDA-Public Use
  Company Number: US-BOEHRINGER INGELHEIM GMBH, GERMANY-2007-BP-16658BP

PATIENT
  Sex: Female
  Weight: 53 kg

DRUGS (7)
  1. MIRAPEX [Suspect]
     Indication: PARKINSON'S DISEASE
     Dates: start: 20030701, end: 20060601
  2. AMANTADINE HCL [Concomitant]
     Indication: PARKINSON'S DISEASE
  3. AZILECT [Concomitant]
     Indication: PARKINSON'S DISEASE
  4. CELEXA [Concomitant]
     Indication: DEPRESSION
  5. PAROXETINE HCL [Concomitant]
  6. CLONAZEPAM [Concomitant]
  7. PREMPRO [Concomitant]

REACTIONS (7)
  - ANXIETY [None]
  - DEPRESSION [None]
  - EMOTIONAL DISTRESS [None]
  - FEAR [None]
  - OBSESSIVE-COMPULSIVE DISORDER [None]
  - PAIN [None]
  - PATHOLOGICAL GAMBLING [None]
